FAERS Safety Report 25465595 (Version 4)
Quarter: 2025Q3

REPORT INFORMATION
  Report Type: Spontaneous
  Country: EU (occurrence: EU)
  Receive Date: 20250623
  Receipt Date: 20250806
  Transmission Date: 20251021
  Serious: Yes (Other)
  Sender: BRISTOL-MYERS SQUIBB COMPANY
  Company Number: None

PATIENT
  Age: 49 Year
  Sex: Female

DRUGS (4)
  1. TRIAMCINOLONE ACETONIDE [Suspect]
     Active Substance: TRIAMCINOLONE ACETONIDE
     Indication: Intervertebral disc protrusion
     Route: 030
     Dates: start: 2016, end: 2017
  2. DEXAMETHASONE SODIUM PHOSPHATE [Suspect]
     Active Substance: DEXAMETHASONE SODIUM PHOSPHATE
     Indication: Asthma
     Route: 048
     Dates: start: 2017, end: 2022
  3. PREDNISONE [Suspect]
     Active Substance: PREDNISONE
     Indication: Asthma
     Route: 048
     Dates: start: 2017, end: 2017
  4. PREDNISONE [Suspect]
     Active Substance: PREDNISONE
     Indication: Intervertebral disc protrusion

REACTIONS (2)
  - Choroiditis [Unknown]
  - Off label use [Unknown]

NARRATIVE: CASE EVENT DATE: 20220304
